FAERS Safety Report 9956684 (Version 1)
Quarter: 2014Q1

REPORT INFORMATION
  Report Type: Report from Study
  Country: US (occurrence: US)
  Receive Date: 20140304
  Receipt Date: 20140304
  Transmission Date: 20141002
  Serious: No
  Sender: FDA-Public Use
  Company Number: US-ABBVIE-13P-163-1098652-00

PATIENT
  Age: 58 Year
  Sex: Female

DRUGS (20)
  1. HUMIRA [Suspect]
     Indication: CROHN^S DISEASE
     Dates: start: 20130424, end: 20130424
  2. HUMIRA [Suspect]
     Dates: start: 20130508, end: 20130508
  3. HUMIRA [Suspect]
  4. PENTASA [Concomitant]
     Indication: CROHN^S DISEASE
  5. PANTOPRAZOLE [Concomitant]
     Indication: GASTRITIS
  6. GABAPENTIN [Concomitant]
     Indication: NEURALGIA
  7. METFORMIN [Concomitant]
     Indication: DIABETES MELLITUS
  8. LISINOPRIL [Concomitant]
     Indication: CARDIAC DISORDER
  9. GEMFIBROZIL [Concomitant]
     Indication: CARDIAC DISORDER
  10. DIGOXIN [Concomitant]
     Indication: CARDIAC DISORDER
  11. BETHANECHOL [Concomitant]
     Indication: PRODUCT USED FOR UNKNOWN INDICATION
  12. BACLOFEN [Concomitant]
     Indication: MUSCLE RELAXANT THERAPY
  13. OXYCODONE [Concomitant]
     Indication: PAIN
     Dosage: 10/650MG, EVERY 4-6 HOURS
  14. TRAMADOL [Concomitant]
     Indication: PAIN
  15. TRAMADOL [Concomitant]
     Indication: PAIN
  16. LEVEMIR [Concomitant]
     Indication: PRODUCT USED FOR UNKNOWN INDICATION
  17. NOVOLOG [Concomitant]
     Indication: PRODUCT USED FOR UNKNOWN INDICATION
     Dosage: SLIDING SCALE
  18. PRO-AIR [Concomitant]
     Indication: DYSPNOEA
  19. CLONAZEPAM [Concomitant]
     Indication: ANXIETY
  20. ONDANSETRON [Concomitant]
     Indication: NAUSEA

REACTIONS (1)
  - Herpes zoster [Recovering/Resolving]
